FAERS Safety Report 6400719-7 (Version None)
Quarter: 2009Q4

REPORT INFORMATION
  Report Type: 
  Country: None (occurrence: None)
  Receive Date: 20091014
  Receipt Date: 20091005
  Transmission Date: 20100525
  Serious: Yes (Other)
  Sender: FDA-Public Use
  Company Number: BR-ABBOTT-09P-020-0601066-00

PATIENT
  Sex: Male

DRUGS (1)
  1. SIBUTRAMINE [Suspect]
     Indication: WEIGHT CONTROL

REACTIONS (2)
  - DIZZINESS [None]
  - SYNCOPE [None]
